FAERS Safety Report 7124894-4 (Version None)
Quarter: 2010Q4

REPORT INFORMATION
  Report Type: 
  Country: None (occurrence: None)
  Receive Date: 20101129
  Receipt Date: 20101117
  Transmission Date: 20110411
  Serious: Yes (Other)
  Sender: FDA-Public Use
  Company Number: PHFR2010GB05452

PATIENT
  Age: 64 Year
  Sex: Male

DRUGS (2)
  1. EXELON [Suspect]
     Indication: DEMENTIA WITH LEWY BODIES
     Dosage: UNK
     Route: 062
  2. EXELON [Suspect]
     Dosage: UNK

REACTIONS (5)
  - CONSTIPATION [None]
  - CUTIS LAXA [None]
  - EXTRAPYRAMIDAL DISORDER [None]
  - RENAL IMPAIRMENT [None]
  - TREMOR [None]
